FAERS Safety Report 24841513 (Version 1)
Quarter: 2025Q1

REPORT INFORMATION
  Report Type: Spontaneous
  Country: US (occurrence: US)
  Receive Date: 20250114
  Receipt Date: 20250114
  Transmission Date: 20250409
  Serious: No
  Sender: PFIZER
  Company Number: US-PFIZER INC-202500005984

PATIENT
  Age: 64 Year
  Sex: Female

DRUGS (6)
  1. IBRANCE [Suspect]
     Active Substance: PALBOCICLIB
     Dosage: 125 MG, DAILY (1 TABLET (125 MG) DAILY BY MOUTH FOR 21 DAYS ON, 7 DAYS OFF)
     Route: 048
  2. ITOVEBI [Concomitant]
     Active Substance: INAVOLISIB
  3. EXEMESTANE [Concomitant]
     Active Substance: EXEMESTANE
  4. FASLODEX [Concomitant]
     Active Substance: FULVESTRANT
  5. GOSERELIN [Concomitant]
     Active Substance: GOSERELIN
  6. AQUAPHOR ANTIBIOTIC [Concomitant]

REACTIONS (1)
  - Drug hypersensitivity [Unknown]
